FAERS Safety Report 18398192 (Version 1)
Quarter: 2020Q4

REPORT INFORMATION
  Report Type: Spontaneous
  Country: US (occurrence: US)
  Receive Date: 20201019
  Receipt Date: 20201019
  Transmission Date: 20210114
  Serious: No
  Sender: FDA-Public Use
  Company Number: None

PATIENT
  Age: 69 Year
  Sex: Male

DRUGS (2)
  1. LISINOPRIL (LISINOPRIL 10MG TAB) [Suspect]
     Active Substance: LISINOPRIL
     Indication: HYPERTENSION
     Route: 048
     Dates: start: 20100623, end: 20200414
  2. LISINOPRIL (LISINOPRIL 10MG TAB) [Suspect]
     Active Substance: LISINOPRIL
     Indication: DIABETES MELLITUS
     Route: 048
     Dates: start: 20100623, end: 20200414

REACTIONS (8)
  - Sepsis [None]
  - Asthenia [None]
  - Blood creatinine increased [None]
  - Hypotension [None]
  - Acquired cystic kidney disease [None]
  - Acute kidney injury [None]
  - Dizziness [None]
  - Renal cyst [None]

NARRATIVE: CASE EVENT DATE: 20200414
